FAERS Safety Report 5914873-4 (Version None)
Quarter: 2008Q4

REPORT INFORMATION
  Report Type: 
  Country: None (occurrence: None)
  Receive Date: 20081010
  Receipt Date: 20081002
  Transmission Date: 20090506
  Serious: Yes (Other)
  Sender: FDA-Public Use
  Company Number: PHBS2008IT05889

PATIENT
  Age: 76 Year
  Sex: Male

DRUGS (1)
  1. DEFERASIROX [Suspect]
     Indication: MYELOFIBROSIS
     Dosage: 500 MG/DAY

REACTIONS (4)
  - BLOOD CREATININE INCREASED [None]
  - EPIGASTRIC DISCOMFORT [None]
  - GENERAL PHYSICAL HEALTH DETERIORATION [None]
  - SERUM FERRITIN INCREASED [None]
